FAERS Safety Report 8235499-6 (Version None)
Quarter: 2012Q1

REPORT INFORMATION
  Report Type: 
  Country: None (occurrence: None)
  Receive Date: 20120322
  Receipt Date: 20120307
  Transmission Date: 20120608
  Serious: Yes (Hospitalization, Other)
  Sender: FDA-Public Use
  Company Number: 2011SGN00346

PATIENT
  Age: 40 Year
  Sex: Male

DRUGS (1)
  1. ADCETRIS [Suspect]
     Indication: HODGKIN'S DISEASE
     Dates: start: 20111019, end: 20111109

REACTIONS (7)
  - CRANIAL NERVE DISORDER [None]
  - JAW DISORDER [None]
  - STRABISMUS [None]
  - HODGKIN'S DISEASE [None]
  - TONGUE PARALYSIS [None]
  - DIPLOPIA [None]
  - DYSPHAGIA [None]
